FAERS Safety Report 14074535 (Version 1)
Quarter: 2017Q4

REPORT INFORMATION
  Report Type: Spontaneous
  Country: US (occurrence: US)
  Receive Date: 20171010
  Receipt Date: 20171010
  Transmission Date: 20180321
  Serious: No
  Sender: FDA-Public Use
  Company Number: US-BAYER-2017-193776

PATIENT
  Age: 72 Year
  Sex: Female
  Weight: 85.99 kg

DRUGS (3)
  1. BAYER ASPIRIN [Suspect]
     Active Substance: ASPIRIN
     Dosage: 1 DF, QD
     Route: 048
  2. ALEVE [Suspect]
     Active Substance: NAPROXEN SODIUM
     Indication: INFLAMMATION
     Dosage: 3 DF, QD
     Route: 048
     Dates: start: 20171009
  3. ANTIBIOTIC [CHLORAMPHENICOL] [Concomitant]
     Dosage: UNK

REACTIONS (2)
  - Product use in unapproved indication [Unknown]
  - Inappropriate prescribing [Unknown]

NARRATIVE: CASE EVENT DATE: 20171009
